FAERS Safety Report 4961699-4 (Version None)
Quarter: 2006Q2

REPORT INFORMATION
  Report Type: 
  Country: None (occurrence: None)
  Receive Date: 20060404
  Receipt Date: 20060320
  Transmission Date: 20061013
  Serious: Yes (Other)
  Sender: FDA-Public Use
  Company Number: GBWYE486720MAR06

PATIENT
  Age: 55 Year
  Sex: Female
  Weight: 61 kg

DRUGS (3)
  1. ENBREL [Suspect]
     Indication: RHEUMATOID ARTHRITIS
     Route: 058
     Dates: start: 20051013, end: 20060122
  2. BRUFEN [Concomitant]
     Indication: RHEUMATOID ARTHRITIS
     Dosage: UNKNOWN
  3. SODIUM AUROTHIOMALATE [Concomitant]
     Dates: start: 20040901

REACTIONS (4)
  - ABDOMINAL PAIN [None]
  - ALOPECIA [None]
  - FEELING COLD [None]
  - MOUTH ULCERATION [None]
